APPROVED DRUG PRODUCT: HYDROMORPHONE HYDROCHLORIDE
Active Ingredient: HYDROMORPHONE HYDROCHLORIDE
Strength: 16MG
Dosage Form/Route: TABLET, EXTENDED RELEASE;ORAL
Application: A204278 | Product #003 | TE Code: AB
Applicant: PADAGIS US LLC
Approved: Apr 6, 2015 | RLD: No | RS: No | Type: RX